FAERS Safety Report 5011648-8 (Version None)
Quarter: 2006Q2

REPORT INFORMATION
  Report Type: 
  Country: None (occurrence: None)
  Receive Date: 20060526
  Receipt Date: 20060517
  Transmission Date: 20061013
  Serious: Yes (Death, Hospitalization)
  Sender: FDA-Public Use
  Company Number: FR-SOLVAY-00206001702

PATIENT
  Age: 68 Year
  Sex: Male
  Weight: 110 kg

DRUGS (6)
  1. LASILIX [Concomitant]
     Indication: ILL-DEFINED DISORDER
     Dosage: DAILY DOSE:  UNKNOWN
     Route: 048
     Dates: end: 20060412
  2. COVERSYL [Suspect]
     Indication: ILL-DEFINED DISORDER
     Dosage: DAILY DOSE: 8 MILLIGRAM(S)
     Route: 048
     Dates: end: 20060401
  3. DIFFU K [Suspect]
     Indication: ILL-DEFINED DISORDER
     Dosage: DAILY DOSE: 1 DOSAGE FORM
     Route: 048
     Dates: end: 20060401
  4. DIAMICRON NOS [Concomitant]
     Indication: ILL-DEFINED DISORDER
     Dosage: DAILY DOSE:  UNKNOWN
     Route: 065
     Dates: end: 20060401
  5. SKENAN [Suspect]
     Indication: PAIN
     Dosage: DAILY DOSE:  UNKNOWN
     Route: 048
     Dates: end: 20060401
  6. PREVISCAN [Suspect]
     Indication: ILL-DEFINED DISORDER
     Dosage: DAILY DOSE:  UNKNOWN
     Route: 065

REACTIONS (9)
  - DYSPNOEA [None]
  - HYPERKALAEMIA [None]
  - INFLAMMATION [None]
  - OEDEMA PERIPHERAL [None]
  - OVERDOSE [None]
  - PAROXYSMAL ARRHYTHMIA [None]
  - RENAL FAILURE ACUTE [None]
  - SKIN LESION [None]
  - URINARY RETENTION [None]
